FAERS Safety Report 20633175 (Version 1)
Quarter: 2022Q1

REPORT INFORMATION
  Report Type: Spontaneous
  Country: US (occurrence: None)
  Receive Date: 20220324
  Receipt Date: 20220324
  Transmission Date: 20220423
  Serious: No
  Sender: FDA-Public Use
  Company Number: None

PATIENT

DRUGS (1)
  1. OXYTOCIN [Suspect]
     Active Substance: OXYTOCIN
     Indication: Delivery
     Dates: start: 20220323, end: 20220324

REACTIONS (2)
  - Therapeutic product effect decreased [None]
  - Product compounding quality issue [None]
